FAERS Safety Report 13259747 (Version 1)
Quarter: 2017Q1

REPORT INFORMATION
  Report Type: Spontaneous
  Country: JP (occurrence: JP)
  Receive Date: 20170222
  Receipt Date: 20170222
  Transmission Date: 20170428
  Serious: Yes (Other)
  Sender: FDA-Public Use
  Company Number: JP-PFIZER INC-2017071459

PATIENT
  Age: 60 Year
  Sex: Male

DRUGS (1)
  1. RHEUMATREX [Suspect]
     Active Substance: METHOTREXATE SODIUM
     Indication: PSORIASIS
     Dosage: 4 MG, WEEKLY
     Route: 048

REACTIONS (2)
  - Product use issue [Unknown]
  - Bile duct cancer [Unknown]

NARRATIVE: CASE EVENT DATE: 201702
